FAERS Safety Report 7866943-1 (Version None)
Quarter: 2011Q4

REPORT INFORMATION
  Report Type: 
  Country: None (occurrence: None)
  Receive Date: 20111028
  Receipt Date: 20111011
  Transmission Date: 20120403
  Serious: Yes (Hospitalization)
  Sender: FDA-Public Use
  Company Number: NL-ROCHE-710425

PATIENT
  Age: 63 Year
  Sex: Male
  Weight: 92.5 kg

DRUGS (4)
  1. ACETAMINOPHEN [Concomitant]
  2. INTERFERON ALFA [Suspect]
     Indication: METASTATIC RENAL CELL CARCINOMA
     Dosage: AS REPORTED: DOSE 3MIE, DATE OF LAST DOSE PRIOR TO SAE: 16 JUNE 2010, PERMANENTLY DISCONTINUED.
     Route: 058
     Dates: start: 20090902, end: 20100616
  3. TEOPTIC [Concomitant]
  4. AVASTIN [Suspect]
     Indication: METASTATIC RENAL CELL CARCINOMA
     Dosage: DATE OF LAST DOSE PRIOR TO SAE:08 JUNE 2010, PERMANENTLY DISCONTINUED.
     Route: 042

REACTIONS (1)
  - PYREXIA [None]
